FAERS Safety Report 22188819 (Version 2)
Quarter: 2023Q2

REPORT INFORMATION
  Report Type: Report from Study
  Country: US (occurrence: US)
  Receive Date: 20230409
  Receipt Date: 20230414
  Transmission Date: 20230722
  Serious: Yes (Other)
  Sender: FDA-Public Use
  Company Number: US-JNJFOC-20230402531

PATIENT
  Age: 64 Year
  Sex: Female

DRUGS (14)
  1. TREMFYA [Suspect]
     Active Substance: GUSELKUMAB
     Indication: Psoriasis
     Route: 058
     Dates: start: 20230117
  2. TREMFYA [Suspect]
     Active Substance: GUSELKUMAB
     Indication: Psoriatic arthropathy
     Route: 058
     Dates: start: 20230117
  3. CETIRIZINE [Concomitant]
     Active Substance: CETIRIZINE HYDROCHLORIDE
  4. APPLE CIDER [Concomitant]
  5. BIOTIN [Concomitant]
     Active Substance: BIOTIN
  6. CERAVE PSORIASIS [Concomitant]
  7. DEVICE [Concomitant]
     Active Substance: DEVICE
  8. FOLIC ACID [Concomitant]
     Active Substance: FOLIC ACID
  9. MAGNESIUM [Concomitant]
     Active Substance: MAGNESIUM
  10. MELOXICAM [Concomitant]
     Active Substance: MELOXICAM
  11. METFORMIN HYDROCHLORIDE [Concomitant]
     Active Substance: METFORMIN HYDROCHLORIDE
  12. METHOTREXATE [Concomitant]
     Active Substance: METHOTREXATE
  13. THERACRAN HP [Concomitant]
  14. CHOLECALCIFEROL [Concomitant]
     Active Substance: CHOLECALCIFEROL

REACTIONS (2)
  - Psoriatic arthropathy [Unknown]
  - Headache [Unknown]
